FAERS Safety Report 21056495 (Version 1)
Quarter: 2022Q3

REPORT INFORMATION
  Report Type: Spontaneous
  Country: US (occurrence: US)
  Receive Date: 20220708
  Receipt Date: 20220708
  Transmission Date: 20221027
  Serious: No
  Sender: FDA-Public Use
  Company Number: US-Calliditas-2022CAL00172

PATIENT
  Age: 46 Year
  Sex: Female

DRUGS (1)
  1. TARPEYO [Suspect]
     Active Substance: BUDESONIDE
     Indication: IgA nephropathy
     Dosage: 16 MG (4 MG CAPSULES) ONCE DAILY
     Route: 050
     Dates: start: 20220617

REACTIONS (4)
  - Blood pressure increased [Unknown]
  - Abdominal distension [Unknown]
  - Joint swelling [Unknown]
  - Inappropriate schedule of product administration [Unknown]
